FAERS Safety Report 5904058-X (Version None)
Quarter: 2008Q3

REPORT INFORMATION
  Report Type: 
  Country: None (occurrence: None)
  Receive Date: 20080919
  Receipt Date: 20080723
  Transmission Date: 20090109
  Serious: Yes (Other)
  Sender: FDA-Public Use
  Company Number: US-WYE-H05230408

PATIENT
  Sex: Female

DRUGS (1)
  1. PRISTIQ [Suspect]
     Indication: DEPRESSION
     Dosage: 50 MG (FREQUENCY UNKNOWN), ORAL
     Route: 048

REACTIONS (4)
  - ANXIETY [None]
  - HEADACHE [None]
  - INSOMNIA [None]
  - NAUSEA [None]
